FAERS Safety Report 26138501 (Version 1)
Quarter: 2025Q4

REPORT INFORMATION
  Report Type: Spontaneous
  Country: JP (occurrence: JP)
  Receive Date: 20251210
  Receipt Date: 20251210
  Transmission Date: 20260117
  Serious: Yes (Death, Other)
  Sender: CITIUS PHARMACEUTICALS
  Company Number: JP-CITIUS PHARMACEUTICALS, INC.-2025CTS000036

PATIENT
  Age: 76 Year
  Sex: Female

DRUGS (1)
  1. DENILEUKIN DIFTITOX [Suspect]
     Active Substance: DENILEUKIN DIFTITOX
     Indication: Angioimmunoblastic T-cell lymphoma
     Dosage: 9 MICROGRAM/KILOGRAM ONCE A DAY IN 5 DAYS
     Route: 041
     Dates: start: 20240131, end: 20240426

REACTIONS (5)
  - Death [Fatal]
  - Malignant neoplasm progression [Unknown]
  - Rash [Recovering/Resolving]
  - Aspartate aminotransferase increased [Recovering/Resolving]
  - Alanine aminotransferase increased [Recovering/Resolving]

NARRATIVE: CASE EVENT DATE: 20240208
